FAERS Safety Report 21382606 (Version 2)
Quarter: 2023Q1

REPORT INFORMATION
  Report Type: Report from Study
  Country: CN (occurrence: None)
  Receive Date: 20220927
  Receipt Date: 20230112
  Transmission Date: 20230418
  Serious: Yes (Death)
  Sender: FDA-Public Use
  Company Number: CN-ROCHE-3130149

PATIENT
  Age: 70 Year
  Sex: Male

DRUGS (11)
  1. RITUXIMAB [Suspect]
     Active Substance: RITUXIMAB
     Indication: Mantle cell lymphoma
     Dosage: 7 HOURS 24 MINS
     Route: 041
     Dates: start: 20220210, end: 20220210
  2. RITUXIMAB [Suspect]
     Active Substance: RITUXIMAB
     Route: 042
     Dates: start: 20220317, end: 20220317
  3. RITUXIMAB [Suspect]
     Active Substance: RITUXIMAB
     Dosage: 5 HOURS 18 MINS
     Route: 042
     Dates: start: 20220428, end: 20220428
  4. ACALABRUTINIB [Suspect]
     Active Substance: ACALABRUTINIB
     Indication: Mantle cell lymphoma
     Dosage: 8 WEEKS 2 DAYS
     Route: 048
     Dates: start: 20220210, end: 20220408
  5. ACALABRUTINIB [Suspect]
     Active Substance: ACALABRUTINIB
     Dosage: 3 WEEKS 2 DAYS
     Route: 048
     Dates: start: 20220428, end: 20220520
  6. BENDAMUSTINE [Suspect]
     Active Substance: BENDAMUSTINE
     Indication: Mantle cell lymphoma
     Dosage: 5 HOURS 20 MINS
     Route: 042
     Dates: start: 20220211, end: 20220211
  7. BENDAMUSTINE [Suspect]
     Active Substance: BENDAMUSTINE
     Dosage: 3 HOURS 10 MINS
     Route: 042
     Dates: start: 20220211, end: 20220211
  8. BENDAMUSTINE [Suspect]
     Active Substance: BENDAMUSTINE
     Route: 042
     Dates: start: 20220317, end: 20220317
  9. BENDAMUSTINE [Suspect]
     Active Substance: BENDAMUSTINE
     Dosage: 7 HOURS 24 MINS
     Route: 042
     Dates: start: 20220318, end: 20220318
  10. BENDAMUSTINE [Suspect]
     Active Substance: BENDAMUSTINE
     Route: 042
     Dates: start: 20220428, end: 20220428
  11. BENDAMUSTINE [Suspect]
     Active Substance: BENDAMUSTINE
     Dosage: 5 HOURS 18 MINS
     Route: 042
     Dates: start: 20220429, end: 20220429

REACTIONS (1)
  - Pleural effusion [Fatal]

NARRATIVE: CASE EVENT DATE: 20220520
